FAERS Safety Report 11328477 (Version 2)
Quarter: 2015Q3

REPORT INFORMATION
  Report Type: Spontaneous
  Country: IT (occurrence: IT)
  Receive Date: 20150731
  Receipt Date: 20150916
  Transmission Date: 20151125
  Serious: Yes (Hospitalization, Other)
  Sender: FDA-Public Use
  Company Number: IT-BRISTOL-MYERS SQUIBB COMPANY-BMS-2015-048856

PATIENT
  Age: 73 Year
  Sex: Female

DRUGS (2)
  1. AMARYL [Interacting]
     Active Substance: GLIMEPIRIDE
     Indication: DIABETES MELLITUS
     Dosage: 1 UNK, UNK
     Route: 048
     Dates: start: 19950101, end: 20150710
  2. COUMADIN [Suspect]
     Active Substance: WARFARIN SODIUM
     Indication: VENOUS THROMBOSIS
     Dosage: 2.5 MG, UNK
     Route: 048
     Dates: start: 20080101, end: 20150710

REACTIONS (2)
  - Hypoglycaemic coma [Recovered/Resolved]
  - Drug interaction [Unknown]

NARRATIVE: CASE EVENT DATE: 20150710
